FAERS Safety Report 9199707 (Version 3)
Quarter: 2014Q1

REPORT INFORMATION
  Report Type: Report from Study
  Country: GB (occurrence: GB)
  Receive Date: 20130329
  Receipt Date: 20140320
  Transmission Date: 20141002
  Serious: Yes (Hospitalization)
  Sender: FDA-Public Use
  Company Number: GB-ALEXION PHARMACEUTICALS INC.-A201300545

PATIENT
  Sex: 0

DRUGS (23)
  1. ECULIZUMAB [Suspect]
     Indication: HAEMOLYTIC URAEMIC SYNDROME
     Dosage: 900 MG, X 2 DOSES
     Route: 042
     Dates: start: 20131129
  2. ECULIZUMAB [Suspect]
     Dosage: 1200 MG, Q2W
     Route: 042
  3. AZATHIOPRINE [Concomitant]
     Indication: IMMUNOSUPPRESSION
     Dosage: UNK
     Route: 048
     Dates: start: 20091022, end: 20110904
  4. PREDNISOLONE [Concomitant]
     Indication: IMMUNOSUPPRESSION
     Dosage: UNK
     Route: 048
     Dates: start: 20030104
  5. ARANESP [Concomitant]
     Indication: FULL BLOOD COUNT
     Dosage: UNK
     Route: 058
     Dates: start: 20090908
  6. NIFEDIPINE [Concomitant]
     Indication: HYPERTENSION
     Dosage: 30 MG, QD
     Route: 048
     Dates: start: 20100115, end: 20110619
  7. NIFEDIPINE [Concomitant]
     Dosage: 60 MG, QD
     Route: 048
     Dates: start: 20110620, end: 20111102
  8. NIFEDIPINE [Concomitant]
     Dosage: 90 MG, QD
     Route: 048
     Dates: start: 20111103
  9. METHYLDOPA [Concomitant]
     Indication: HYPERTENSION
     Dosage: 500 MG, TID
     Route: 048
     Dates: start: 20100429, end: 20110725
  10. METHYLDOPA [Concomitant]
     Dosage: 250 MG, BID
     Route: 048
     Dates: start: 20110726, end: 20110914
  11. METHYLDOPA [Concomitant]
     Dosage: 500 MG, BID
     Route: 048
     Dates: start: 20110915, end: 20130509
  12. DOXAZOSIN [Concomitant]
     Indication: HYPERTENSION
     Dosage: 2 MG, QD
     Route: 048
     Dates: start: 20130811, end: 20140210
  13. ERTAPENEM [Concomitant]
     Indication: ANTIBIOTIC THERAPY
     Dosage: UNK
     Route: 042
     Dates: start: 20110614, end: 20110620
  14. CEPHALEXIN                         /00145501/ [Concomitant]
     Indication: PROPHYLAXIS
     Dosage: UNK
     Route: 048
     Dates: start: 20130810
  15. LANSOPRAZOLE [Concomitant]
     Indication: PROPHYLAXIS
     Dosage: UNK
     Route: 048
     Dates: start: 20130109
  16. LANTHANUM CARBONATE [Concomitant]
     Indication: PROPHYLAXIS
     Dosage: UNK
     Route: 048
     Dates: start: 20021113
  17. SEVELAMER [Concomitant]
     Indication: PROPHYLAXIS
     Dosage: UNK
     Route: 048
     Dates: start: 20130113
  18. CYCLIZINE [Concomitant]
     Indication: PRODUCT USED FOR UNKNOWN INDICATION
     Dosage: UNK
     Route: 048
     Dates: start: 20130811
  19. PARACETAMOL [Concomitant]
     Indication: PRODUCT USED FOR UNKNOWN INDICATION
     Dosage: UNK
     Route: 048
     Dates: start: 20130811
  20. DOXYCYCLINE [Concomitant]
     Indication: INFECTION
     Dosage: UNK
     Route: 048
     Dates: start: 20130814, end: 20130820
  21. MORPHINE [Concomitant]
     Indication: PAIN
     Dosage: UNK
     Route: 042
     Dates: start: 20131112, end: 20131113
  22. HEPARIN [Concomitant]
     Indication: ANTICOAGULANT THERAPY
     Dosage: UNK
     Route: 042
     Dates: start: 20131112, end: 20131115
  23. ASPIRIN [Concomitant]
     Indication: PROPHYLAXIS
     Dosage: UNK
     Route: 048
     Dates: start: 20131126

REACTIONS (3)
  - Urosepsis [Recovered/Resolved]
  - Peritonitis [Recovered/Resolved]
  - Ischaemia [Recovered/Resolved]
